FAERS Safety Report 5239878-0 (Version None)
Quarter: 2007Q1

REPORT INFORMATION
  Report Type: 
  Country: None (occurrence: None)
  Receive Date: 20070214
  Receipt Date: 20070214
  Transmission Date: 20070707
  Serious: Yes (Hospitalization)
  Sender: FDA-Public Use
  Company Number: None

PATIENT
  Sex: Male

DRUGS (13)
  1. HEPARIN [Suspect]
     Indication: ATRIAL FIBRILLATION
     Dosage: TITRATION
  2. HEPARIN [Suspect]
     Indication: CATHETERISATION CARDIAC
     Dosage: TITRATION
  3. SIMVASTATIN [Concomitant]
  4. ALLOPURINOL SODIUM [Concomitant]
  5. LORATADINE [Concomitant]
  6. FORMOTEROL INHALER [Concomitant]
  7. MOMETASONE INHALER [Concomitant]
  8. MOMETASONE INHALER [Concomitant]
  9. FISH OIL [Concomitant]
  10. NIACIN [Concomitant]
  11. ASPIRIN [Concomitant]
  12. SOTALOL HYDROCHLORIDE [Concomitant]
  13. ATENOLOL [Concomitant]

REACTIONS (1)
  - POST PROCEDURAL HAEMATOMA [None]
